FAERS Safety Report 5998646-2 (Version None)
Quarter: 2008Q4

REPORT INFORMATION
  Report Type: 
  Country: None (occurrence: None)
  Receive Date: 20081213
  Receipt Date: 20080715
  Transmission Date: 20090506
  Serious: No
  Sender: FDA-Public Use
  Company Number: US-AMGEN-KDL294848

PATIENT
  Sex: Female

DRUGS (13)
  1. ENBREL [Suspect]
     Indication: PYODERMA GANGRENOSUM
     Route: 058
     Dates: start: 20060101
  2. CYMBALTA [Concomitant]
  3. PREVACID [Concomitant]
  4. PREMARIN [Concomitant]
  5. GABAPENTIN [Concomitant]
  6. HYDROCODONE BITARTRATE + ACETAMINOPHEN [Concomitant]
  7. CELEBREX [Concomitant]
  8. LASIX [Concomitant]
  9. WARFARIN SODIUM [Concomitant]
  10. ADIPEX [Concomitant]
  11. TOPAMAX [Concomitant]
  12. ZOCOR [Concomitant]
  13. TRAZODONE HCL [Concomitant]

REACTIONS (1)
  - PYODERMA GANGRENOSUM [None]
